FAERS Safety Report 19181593 (Version 3)
Quarter: 2021Q2

REPORT INFORMATION
  Report Type: Spontaneous
  Country: FR (occurrence: FR)
  Receive Date: 20210426
  Receipt Date: 20210628
  Transmission Date: 20210717
  Serious: Yes (Disabling, Other)
  Sender: FDA-Public Use
  Company Number: FR-MYLANLABS-2021M1024218

PATIENT
  Age: 52 Year
  Sex: Male
  Weight: 100 kg

DRUGS (8)
  1. LOXEN L P [Concomitant]
     Active Substance: NICARDIPINE HYDROCHLORIDE
     Dosage: 1 DOSAGE FORM, BID (1 TABLET MORNING AND EVENING BEFORE MEALS, FOR 3 MONTHS)
  2. ISOPTINE L.P. 240 MG [Suspect]
     Active Substance: VERAPAMIL HYDROCHLORIDE
     Dosage: 1 DOSAGE FORM AM (DAILY IN MORNING)
     Dates: start: 202012
  3. ISOPTINE L.P. 240 MG [Suspect]
     Active Substance: VERAPAMIL HYDROCHLORIDE
     Indication: HYPERTENSION
     Dosage: 240 MG, QD (DAILY IN THE MORNING)
  4. SECTRAL [Concomitant]
     Active Substance: ACEBUTOLOL HYDROCHLORIDE
     Dosage: 1 DOSAGE FORM, BID (1 TABLET MORNING AND EVENING, FOR ONE MONTH)
  5. ESIDREX [Concomitant]
     Active Substance: HYDROCHLOROTHIAZIDE
     Dosage: 1 DOSAGE FORM, QD (1 TABLET ON MORNING)
  6. PARACETAMOL/TRAMADOL [Suspect]
     Active Substance: ACETAMINOPHEN\TRAMADOL
     Indication: PRODUCT USED FOR UNKNOWN INDICATION
     Dosage: UNK
  7. IXPRIM [Concomitant]
     Active Substance: ACETAMINOPHEN\TRAMADOL HYDROCHLORIDE
     Dosage: 1 TABLET 1 ?4 TIMES PER DAY AS NEEDED, EVERY 6HOURS AT MINIMUM, MAX 8 TAB PER DAY
  8. VENLAFAXINE [Suspect]
     Active Substance: VENLAFAXINE HYDROCHLORIDE
     Indication: PRODUCT USED FOR UNKNOWN INDICATION
     Dosage: UNK

REACTIONS (2)
  - Erectile dysfunction [Not Recovered/Not Resolved]
  - Emotional poverty [Not Recovered/Not Resolved]

NARRATIVE: CASE EVENT DATE: 20201201
